FAERS Safety Report 25655302 (Version 1)
Quarter: 2025Q3

REPORT INFORMATION
  Report Type: Spontaneous
  Country: US (occurrence: US)
  Receive Date: 20250807
  Receipt Date: 20250807
  Transmission Date: 20251021
  Serious: Yes (Hospitalization)
  Sender: AMGEN
  Company Number: US-AMGEN-USASP2025152669

PATIENT
  Age: 72 Year
  Sex: Male
  Weight: 67.6 kg

DRUGS (25)
  1. IMDELLTRA [Suspect]
     Active Substance: TARLATAMAB-DLLE
     Indication: Product used for unknown indication
     Route: 065
     Dates: start: 20250623, end: 20250623
  2. IMDELLTRA [Suspect]
     Active Substance: TARLATAMAB-DLLE
     Route: 065
     Dates: start: 20250630
  3. DURVALUMAB [Concomitant]
     Active Substance: DURVALUMAB
     Indication: Small cell lung cancer extensive stage
     Route: 040
     Dates: start: 20250106, end: 20250106
  4. DURVALUMAB [Concomitant]
     Active Substance: DURVALUMAB
     Route: 040
     Dates: start: 20250203, end: 20250203
  5. DURVALUMAB [Concomitant]
     Active Substance: DURVALUMAB
     Route: 040
     Dates: start: 20250224, end: 20250224
  6. DURVALUMAB [Concomitant]
     Active Substance: DURVALUMAB
     Route: 040
     Dates: start: 20250408
  7. CHOLESTYRAMINE LIGHT [Concomitant]
     Active Substance: CHOLESTYRAMINE
     Route: 048
     Dates: start: 1992
  8. ATORVASTATIN [Concomitant]
     Active Substance: ATORVASTATIN
     Route: 048
     Dates: start: 2006
  9. CHOLECALCIFEROL [Concomitant]
     Active Substance: CHOLECALCIFEROL
     Route: 048
     Dates: start: 2007
  10. CYCLOBENZAPRINE [Concomitant]
     Active Substance: CYCLOBENZAPRINE
     Route: 048
     Dates: start: 2007
  11. CYANOCOBALAMIN [Concomitant]
     Active Substance: CYANOCOBALAMIN
     Route: 048
     Dates: start: 2010
  12. LEVOTHYROXINE [Concomitant]
     Active Substance: LEVOTHYROXINE
     Route: 048
     Dates: start: 2010
  13. GABAPENTIN [Concomitant]
     Active Substance: GABAPENTIN
     Route: 048
     Dates: start: 2012
  14. MELATONIN [Concomitant]
     Active Substance: MELATONIN
     Route: 048
     Dates: start: 2012
  15. MIRTAZAPINE [Concomitant]
     Active Substance: MIRTAZAPINE
     Route: 048
     Dates: start: 2012
  16. QUETIAPINE [Concomitant]
     Active Substance: QUETIAPINE
     Route: 048
     Dates: start: 2012
  17. NICOTINE [Concomitant]
     Active Substance: NICOTINE
     Route: 023
     Dates: start: 20230306
  18. MUCINEX [Concomitant]
     Active Substance: GUAIFENESIN
     Route: 048
     Dates: start: 20241028
  19. OXYCODONE [Concomitant]
     Active Substance: OXYCODONE
     Route: 048
     Dates: start: 202411
  20. APIXABAN [Concomitant]
     Active Substance: APIXABAN
     Route: 048
     Dates: start: 20241115
  21. MORPHINE [Concomitant]
     Active Substance: MORPHINE
     Route: 048
     Dates: start: 20241226
  22. LISINOPRIL [Concomitant]
     Active Substance: LISINOPRIL
     Route: 048
     Dates: start: 20250111
  23. SENNA [Concomitant]
     Active Substance: SENNOSIDES
     Route: 048
     Dates: start: 20250113
  24. FUROSEMIDE [Concomitant]
     Active Substance: FUROSEMIDE
     Route: 048
     Dates: start: 20250204
  25. PERCOCET [Concomitant]
     Active Substance: ACETAMINOPHEN\OXYCODONE HYDROCHLORIDE
     Route: 048
     Dates: start: 20250407

REACTIONS (1)
  - Pyrexia [Recovered/Resolved]

NARRATIVE: CASE EVENT DATE: 20250624
